FAERS Safety Report 8241188-4 (Version None)
Quarter: 2012Q1

REPORT INFORMATION
  Report Type: 
  Country: None (occurrence: None)
  Receive Date: 20120328
  Receipt Date: 20120321
  Transmission Date: 20120608
  Serious: Yes (Other)
  Sender: FDA-Public Use
  Company Number: US-BMSGILMSD-2012-0052603

PATIENT

DRUGS (3)
  1. ATRIPLA [Suspect]
     Dosage: 1 DF, QD
     Route: 048
     Dates: start: 20120319
  2. ATRIPLA [Suspect]
     Indication: HIV INFECTION
     Dosage: 1 DF, QD
     Route: 048
     Dates: end: 20120316
  3. ATRIPLA [Suspect]
     Dosage: 1 DF, QD
     Route: 048
     Dates: start: 20120317, end: 20120318

REACTIONS (7)
  - HEART RATE IRREGULAR [None]
  - PALPITATIONS [None]
  - INSOMNIA [None]
  - HYPOAESTHESIA [None]
  - PARAESTHESIA [None]
  - MOTOR DYSFUNCTION [None]
  - DISORIENTATION [None]
